FAERS Safety Report 5008513-9 (Version None)
Quarter: 2006Q2

REPORT INFORMATION
  Report Type: 
  Country: None (occurrence: None)
  Receive Date: 20060523
  Receipt Date: 20060512
  Transmission Date: 20061013
  Serious: Yes (Hospitalization)
  Sender: FDA-Public Use
  Company Number: US-AMGEN-US179362

PATIENT
  Sex: Female

DRUGS (1)
  1. NEULASTA [Suspect]
     Indication: MYELODYSPLASTIC SYNDROME
     Dates: start: 20060426

REACTIONS (4)
  - BONE PAIN [None]
  - CHEST PAIN [None]
  - DYSPNOEA [None]
  - NECK PAIN [None]
